FAERS Safety Report 4878006-8 (Version None)
Quarter: 2006Q1

REPORT INFORMATION
  Report Type: 
  Country: None (occurrence: None)
  Receive Date: 20060110
  Receipt Date: 20051227
  Transmission Date: 20060701
  Serious: Yes (Hospitalization)
  Sender: FDA-Public Use
  Company Number: 2005168439

PATIENT
  Age: 69 Year
  Sex: Female

DRUGS (1)
  1. LIPITOR [Suspect]
     Indication: HYPERLIPIDAEMIA
     Dosage: 10 MG (DAILY), ORAL
     Route: 048

REACTIONS (2)
  - DECREASED IMMUNE RESPONSIVENESS [None]
  - HERPES ZOSTER [None]
